FAERS Safety Report 5141510-1 (Version None)
Quarter: 2006Q4

REPORT INFORMATION
  Report Type: 
  Country: None (occurrence: None)
  Receive Date: 20061030
  Receipt Date: 20061030
  Transmission Date: 20070319
  Serious: Yes (Other)
  Sender: FDA-Public Use
  Company Number: None

PATIENT
  Sex: Male
  Weight: 65.7716 kg

DRUGS (1)
  1. SPIRONOLACTONE [Suspect]
     Indication: ASCITES
     Dosage: 2 TABLETS PER DAY PO
     Route: 048
     Dates: start: 20060701, end: 20061028

REACTIONS (3)
  - BREAST MASS [None]
  - BREAST PAIN [None]
  - CONTUSION [None]
